FAERS Safety Report 23716818 (Version 3)
Quarter: 2025Q2

REPORT INFORMATION
  Report Type: Spontaneous
  Country: FR (occurrence: FR)
  Receive Date: 20240408
  Receipt Date: 20250613
  Transmission Date: 20250717
  Serious: Yes (Other)
  Sender: AUROBINDO
  Company Number: FR-AUROBINDO-AUR-APL-2024-014832

PATIENT
  Age: 76 Year
  Sex: Male

DRUGS (3)
  1. AZACITIDINE [Suspect]
     Active Substance: AZACITIDINE
     Indication: Chronic myelomonocytic leukaemia
     Route: 065
  2. AZACITIDINE [Suspect]
     Active Substance: AZACITIDINE
     Indication: Trisomy 8
  3. AZACITIDINE [Suspect]
     Active Substance: AZACITIDINE
     Indication: Intestinal ulcer

REACTIONS (4)
  - Disease recurrence [Unknown]
  - Disease progression [Unknown]
  - Acute myeloid leukaemia [Unknown]
  - Drug ineffective [Unknown]
